FAERS Safety Report 7609274-7 (Version None)
Quarter: 2011Q3

REPORT INFORMATION
  Report Type: 
  Country: None (occurrence: None)
  Receive Date: 20110714
  Receipt Date: 20110705
  Transmission Date: 20111222
  Serious: Yes (Death)
  Sender: FDA-Public Use
  Company Number: NO-TEVA-289115ISR

PATIENT
  Sex: Female

DRUGS (3)
  1. PINEX FORTE [Concomitant]
     Indication: BACK PAIN
     Dates: start: 20110101, end: 20110101
  2. ACETAMINOPHEN [Concomitant]
     Indication: BACK PAIN
     Dates: start: 20110101, end: 20110201
  3. IBUPROFEN [Suspect]
     Indication: BACK PAIN
     Dosage: UNKNOWN DOSE 2-3 TIMES DAILY
     Dates: start: 20110101, end: 20110201

REACTIONS (2)
  - POST PROCEDURAL COMPLICATION [None]
  - GASTRIC ULCER PERFORATION [None]
